FAERS Safety Report 24397603 (Version 1)
Quarter: 2024Q4

REPORT INFORMATION
  Report Type: Spontaneous
  Country: US (occurrence: US)
  Receive Date: 20241004
  Receipt Date: 20241004
  Transmission Date: 20250115
  Serious: No
  Sender: MERCK
  Company Number: US-009507513-2409USA009148

PATIENT
  Sex: Female

DRUGS (4)
  1. WINREVAIR [Suspect]
     Active Substance: SOTATERCEPT-CSRK
     Indication: Product used for unknown indication
     Dosage: UNK, UNKNOWN
     Dates: start: 2024
  2. REMODULIN [Suspect]
     Active Substance: TREPROSTINIL
     Indication: Pulmonary arterial hypertension
     Dosage: UNK, FREQUENCY REPORTED AS CONTINUING
     Route: 058
     Dates: start: 202112
  3. REMODULIN [Suspect]
     Active Substance: TREPROSTINIL
     Dosage: REMUNITY DEVICE [SELF-FILLED PUMP], 0.060 MICROGRAM PER KILOGRAM, FREQUENCY: CONTINUOUS
     Route: 058
     Dates: start: 202307
  4. BOSENTAN [Concomitant]
     Active Substance: BOSENTAN

REACTIONS (1)
  - Flushing [Recovered/Resolved]

NARRATIVE: CASE EVENT DATE: 20240101
